FAERS Safety Report 24237301 (Version 1)
Quarter: 2024Q3

REPORT INFORMATION
  Report Type: Spontaneous
  Country: US (occurrence: US)
  Receive Date: 20240822
  Receipt Date: 20240822
  Transmission Date: 20241017
  Serious: Yes (Other)
  Sender: CSL Plasma
  Company Number: US-CSLP-29602605760-V10882041-259

PATIENT
  Age: 36 Year
  Sex: Female

DRUGS (1)
  1. ANTICOAGULANT SODIUM CITRATE [Suspect]
     Active Substance: SODIUM CITRATE
     Indication: Anticoagulant therapy
     Route: 050
     Dates: start: 20240809, end: 20240809

REACTIONS (18)
  - Neuropathy peripheral [Recovered/Resolved]
  - Pain [Recovered/Resolved]
  - Dysgeusia [Recovered/Resolved]
  - Abdominal pain [Recovered/Resolved]
  - Muscle twitching [Recovered/Resolved]
  - Feeling hot [Recovered/Resolved]
  - Tremor [Recovered/Resolved]
  - Hypoaesthesia [Recovered/Resolved]
  - Tetany [Recovered/Resolved]
  - Pallor [Recovered/Resolved]
  - Anxiety [Recovered/Resolved]
  - Muscle spasms [Recovered/Resolved]
  - Nausea [Recovered/Resolved]
  - Dyspnoea [Recovered/Resolved]
  - Paraesthesia [Recovered/Resolved]
  - Nervousness [Recovered/Resolved]
  - Dyskinesia [Recovered/Resolved]
  - Body temperature increased [Recovered/Resolved]

NARRATIVE: CASE EVENT DATE: 20240809
